FAERS Safety Report 4298698-4 (Version None)
Quarter: 2004Q1

REPORT INFORMATION
  Report Type: 
  Country: None (occurrence: None)
  Receive Date: 20040126
  Receipt Date: 20031021
  Transmission Date: 20041129
  Serious: No
  Sender: FDA-Public Use
  Company Number: USA031050478

PATIENT
  Age: 14 Year
  Sex: Female

DRUGS (2)
  1. STRATTERA [Suspect]
     Dosage: 10 MG
  2. PROZAC [Suspect]
     Dosage: 20 MG

REACTIONS (2)
  - CONFUSIONAL STATE [None]
  - DRUG INTERACTION [None]
